FAERS Safety Report 18578399 (Version 7)
Quarter: 2021Q1

REPORT INFORMATION
  Report Type: Spontaneous
  Country: GB (occurrence: GB)
  Receive Date: 20201204
  Receipt Date: 20210312
  Transmission Date: 20210419
  Serious: Yes (Hospitalization, Other)
  Sender: FDA-Public Use
  Company Number: GB-ACCORD-209802

PATIENT
  Age: 68 Year
  Sex: Male

DRUGS (15)
  1. BISOPROLOL [Concomitant]
     Active Substance: BISOPROLOL
     Dosage: IN THE MORNING
  2. CYCLOPHOSPHAMIDE/CYCLOPHOSPHAMIDE MONOHYDRATE [Concomitant]
     Active Substance: CYCLOPHOSPHAMIDE
     Dosage: ONCE IN THE MORNING FOR A FURTHER DAY THEN STOP
  3. NOVOMIX [Concomitant]
     Active Substance: INSULIN ASPART
     Dosage: 32 UNITS IN THE MORNING AND 28 UNITS AT TEATIME
  4. CLOBETASONE/CLOBETASONE BUTYRATE [Concomitant]
  5. COTRIMOXAZOLE [Concomitant]
     Active Substance: SULFAMETHOXAZOLE\TRIMETHOPRIM
     Dosage: BID, 80MG/400MG, ON MONDAY, WEDNESDAY AND FRIDAY
     Route: 048
  6. APIXABAN [Suspect]
     Active Substance: APIXABAN
     Indication: PULMONARY EMBOLISM
     Dosage: 10 MILLIGRAM PER DAY
  7. LANSOPRAZOLE. [Concomitant]
     Active Substance: LANSOPRAZOLE
     Dosage: IN THE MORNING
  8. ACICLOVIR [Concomitant]
     Active Substance: ACYCLOVIR
     Dosage: IN THE MORNING
  9. ADCAL?D3 [Concomitant]
     Active Substance: CALCIUM CARBONATE\CHOLECALCIFEROL
  10. APIXABAN [Suspect]
     Active Substance: APIXABAN
     Indication: PULMONARY EMBOLISM
     Dosage: 10 MILLIGRAM PER DAY
  11. CLOPIDOGREL [Suspect]
     Active Substance: CLOPIDOGREL BISULFATE
     Indication: TRANSIENT ISCHAEMIC ATTACK
     Dosage: IN THE MORNING
  12. PREDNISOLONE. [Suspect]
     Active Substance: PREDNISOLONE
     Indication: VASCULITIS
     Dosage: IN THE MORNING, WITH PLANNED WEANING REGIME
  13. DARBEPOETIN ALFA [Concomitant]
     Active Substance: DARBEPOETIN ALFA
     Dosage: ON TUESDAYS
     Route: 058
  14. FLUCONAZOLE. [Concomitant]
     Active Substance: FLUCONAZOLE
     Dosage: IN THE MORNING
  15. COTRIMOXAZOLE [Concomitant]
     Active Substance: SULFAMETHOXAZOLE\TRIMETHOPRIM
     Dosage: 80MG/400MG, ON MONDAY, WEDNESDAY AND FRIDAY
     Route: 048

REACTIONS (8)
  - Pulmonary embolism [Unknown]
  - Transient ischaemic attack [Unknown]
  - Duodenal ulcer haemorrhage [Unknown]
  - Drug ineffective [Unknown]
  - Amaurosis fugax [Unknown]
  - Melaena [Unknown]
  - Upper gastrointestinal haemorrhage [Unknown]
  - Circulatory collapse [Unknown]
